FAERS Safety Report 4748694-5 (Version None)
Quarter: 2005Q3

REPORT INFORMATION
  Report Type: 
  Country: None (occurrence: None)
  Receive Date: 20050817
  Receipt Date: 20050808
  Transmission Date: 20060218
  Serious: Yes (Other)
  Sender: FDA-Public Use
  Company Number: 2005112820

PATIENT
  Sex: Female

DRUGS (1)
  1. SOLU-CORTEF [Suspect]
     Indication: ILL-DEFINED DISORDER
     Dates: start: 20050805, end: 20050805

REACTIONS (3)
  - FOREIGN BODY IN EYE [None]
  - LIMB INJURY [None]
  - PHARMACEUTICAL PRODUCT COMPLAINT [None]
